FAERS Safety Report 9922121 (Version 2)
Quarter: 2014Q2

REPORT INFORMATION
  Report Type: Report from Study
  Country: DE (occurrence: DE)
  Receive Date: 20140225
  Receipt Date: 20140403
  Transmission Date: 20141212
  Serious: Yes (Other)
  Sender: FDA-Public Use
  Company Number: DE-ABBVIE-14P-062-1203506-00

PATIENT
  Age: 52 Year
  Sex: Male
  Weight: 134 kg

DRUGS (1)
  1. HUMIRA [Suspect]
     Indication: PSORIASIS
     Route: 058
     Dates: start: 20130617

REACTIONS (1)
  - Glucose tolerance impaired [Not Recovered/Not Resolved]
